FAERS Safety Report 4922550-1 (Version None)
Quarter: 2006Q1

REPORT INFORMATION
  Report Type: 
  Country: None (occurrence: None)
  Receive Date: 20060224
  Receipt Date: 20060202
  Transmission Date: 20060701
  Serious: Yes (Hospitalization)
  Sender: FDA-Public Use
  Company Number: BR-GLAXOSMITHKLINE-A0592022A

PATIENT
  Age: 68 Year
  Sex: Male
  Weight: 68.3 kg

DRUGS (1)
  1. DUTASTERIDE [Suspect]
     Indication: PROSTATE CANCER
     Dosage: .5MG PER DAY
     Route: 048
     Dates: start: 20040811

REACTIONS (4)
  - CHOLELITHIASIS [None]
  - JAUNDICE [None]
  - NAUSEA [None]
  - PANCREATITIS [None]
